FAERS Safety Report 24702276 (Version 4)
Quarter: 2024Q4

REPORT INFORMATION
  Report Type: Spontaneous
  Country: ES (occurrence: ES)
  Receive Date: 20241205
  Receipt Date: 20241225
  Transmission Date: 20250115
  Serious: Yes (Hospitalization, Other)
  Sender: BAXTER
  Company Number: ES-MLMSERVICE-20241121-PI263407-00273-3

PATIENT
  Age: 84 Year
  Sex: Male

DRUGS (1)
  1. PROPOFOL [Suspect]
     Active Substance: PROPOFOL
     Indication: Sedative therapy
     Dosage: INFUSION
     Route: 042

REACTIONS (10)
  - Bacterial sepsis [Recovered/Resolved]
  - Haemodynamic instability [Recovered/Resolved]
  - Renal impairment [Recovered/Resolved]
  - Blood disorder [Recovered/Resolved]
  - Pyrexia [Recovered/Resolved]
  - Chills [Recovered/Resolved]
  - Vomiting [Recovered/Resolved]
  - Procalcitonin increased [Recovered/Resolved]
  - Product contamination microbial [Recovered/Resolved]
  - Pantoea agglomerans infection [Recovered/Resolved]
